FAERS Safety Report 12343297 (Version 2)
Quarter: 2016Q2

REPORT INFORMATION
  Report Type: Spontaneous
  Country: DE (occurrence: DE)
  Receive Date: 20160506
  Receipt Date: 20160520
  Transmission Date: 20160815
  Serious: Yes (Death, Life-Threatening)
  Sender: FDA-Public Use
  Company Number: DE-B.I. PHARMACEUTICALS,INC./RIDGEFIELD-2016-BI-28492DE

PATIENT
  Age: 78 Year
  Sex: Female
  Weight: 69 kg

DRUGS (6)
  1. IBUPROFEN. [Suspect]
     Active Substance: IBUPROFEN
     Indication: BACK PAIN
     Dosage: 3200 MG
     Route: 048
     Dates: start: 20160401, end: 20160404
  2. PRAXBIND [Suspect]
     Active Substance: IDARUCIZUMAB
     Indication: PRODUCT USED FOR UNKNOWN INDICATION
     Dosage: 5 G
     Route: 042
     Dates: start: 20160404, end: 20160404
  3. RAMILPRIL/HCT [Concomitant]
     Indication: PRODUCT USED FOR UNKNOWN INDICATION
     Dosage: 1 ANZ
     Route: 065
  4. PRADAXA [Suspect]
     Active Substance: DABIGATRAN ETEXILATE MESYLATE
     Indication: CEREBROVASCULAR ACCIDENT PROPHYLAXIS
  5. PRADAXA [Suspect]
     Active Substance: DABIGATRAN ETEXILATE MESYLATE
     Indication: ATRIAL FIBRILLATION
     Dosage: 220 MG
     Route: 048
     Dates: start: 20160330, end: 20160404
  6. PARACETAMOL [Suspect]
     Active Substance: ACETAMINOPHEN
     Indication: PRODUCT USED FOR UNKNOWN INDICATION
     Dosage: 2000 MG
     Route: 048
     Dates: start: 20160401, end: 20160404

REACTIONS (4)
  - Upper gastrointestinal haemorrhage [Recovered/Resolved]
  - Acute respiratory distress syndrome [Fatal]
  - Pneumonia aspiration [Fatal]
  - Haematemesis [Unknown]

NARRATIVE: CASE EVENT DATE: 20160404
